FAERS Safety Report 15773033 (Version 1)
Quarter: 2018Q4

REPORT INFORMATION
  Report Type: Spontaneous
  Country: US (occurrence: US)
  Receive Date: 20181228
  Receipt Date: 20181228
  Transmission Date: 20190205
  Serious: No
  Sender: FDA-Public Use
  Company Number: US-GE HEALTHCARE LIFE SCIENCES-2018CSU004304

PATIENT
  Age: 21 Year
  Sex: Male

DRUGS (2)
  1. OMNIPAQUE [Suspect]
     Active Substance: IOHEXOL
     Indication: ABDOMINAL PAIN LOWER
  2. OMNIPAQUE [Suspect]
     Active Substance: IOHEXOL
     Indication: ABDOMINAL PAIN UPPER
     Dosage: 90 ML, SINGLE
     Route: 042
     Dates: start: 20181022, end: 20181022

REACTIONS (4)
  - Increased upper airway secretion [Unknown]
  - Urticaria [Unknown]
  - Abdominal pain upper [Unknown]
  - Sneezing [Unknown]

NARRATIVE: CASE EVENT DATE: 20181022
